FAERS Safety Report 6489770-9 (Version None)
Quarter: 2009Q4

REPORT INFORMATION
  Report Type: 
  Country: None (occurrence: None)
  Receive Date: 20091207
  Receipt Date: 20091123
  Transmission Date: 20100525
  Serious: Yes (Hospitalization)
  Sender: FDA-Public Use
  Company Number: 2009AC000384

PATIENT
  Age: 52 Year
  Sex: Female

DRUGS (20)
  1. DIGOXIN [Suspect]
     Dosage: 0.125 MG;PO
     Route: 048
     Dates: start: 20071101, end: 20080401
  2. PREMARIN [Concomitant]
  3. CHANTIX [Concomitant]
  4. HYDROCODONE [Concomitant]
  5. CYCLOBENZAPRINE [Concomitant]
  6. ASPIRIN [Concomitant]
  7. LISINOPRIL [Concomitant]
  8. TYLENOL (CAPLET) [Concomitant]
  9. WELLBUTRIN [Concomitant]
  10. XANAX [Concomitant]
  11. FLECAINIDE ACETATE [Concomitant]
  12. FLEXERIL [Concomitant]
  13. TRAMADOL HCL [Concomitant]
  14. LORTAB [Concomitant]
  15. ZITHROMAX [Concomitant]
  16. ALPRAZOLAM [Concomitant]
  17. FLECAINIDE ACETATE [Concomitant]
  18. BUPROPION HCL [Concomitant]
  19. LEXAPRO [Concomitant]
  20. LYRICA [Concomitant]

REACTIONS (6)
  - ANXIETY [None]
  - DEFORMITY [None]
  - ECONOMIC PROBLEM [None]
  - PAIN [None]
  - PANIC ATTACK [None]
  - PNEUMONIA [None]
